FAERS Safety Report 20575222 (Version 2)
Quarter: 2022Q2

REPORT INFORMATION
  Report Type: Report from Study
  Country: DE (occurrence: DE)
  Receive Date: 20220310
  Receipt Date: 20220425
  Transmission Date: 20220721
  Serious: Yes (Hospitalization, Other)
  Sender: FDA-Public Use
  Company Number: DE-BAYER-2022A032141

PATIENT
  Age: 65 Year
  Sex: Female

DRUGS (2)
  1. VENTAVIS [Suspect]
     Active Substance: ILOPROST
     Indication: Pulmonary arterial hypertension
     Dosage: 4X DAILY, QID
     Route: 055
     Dates: start: 20171201
  2. VENTAVIS [Suspect]
     Active Substance: ILOPROST
     Indication: Pulmonary hypertension

REACTIONS (4)
  - Pulmonary arterial hypertension [Not Recovered/Not Resolved]
  - General physical health deterioration [Not Recovered/Not Resolved]
  - Haemoptysis [Unknown]
  - Cough [Unknown]

NARRATIVE: CASE EVENT DATE: 20220405
